FAERS Safety Report 9662878 (Version 1)
Quarter: 2013Q4

REPORT INFORMATION
  Report Type: Spontaneous
  Country: US (occurrence: US)
  Receive Date: 20131031
  Receipt Date: 20131031
  Transmission Date: 20140711
  Serious: No
  Sender: FDA-Public Use
  Company Number: US-PURDUE-USA-2011-0075097

PATIENT
  Sex: Female

DRUGS (2)
  1. OXYCONTIN (NDA 22-272) [Suspect]
     Indication: PAIN
     Dosage: 10 MG, TID
     Route: 048
  2. OXYIR CAPSULES 5 MG [Suspect]

REACTIONS (4)
  - Migraine [Unknown]
  - Malaise [Unknown]
  - Vomiting [Unknown]
  - Pruritus [Unknown]
